FAERS Safety Report 6212466-5 (Version None)
Quarter: 2009Q2

REPORT INFORMATION
  Report Type: 
  Country: None (occurrence: None)
  Receive Date: 20090529
  Receipt Date: 20090520
  Transmission Date: 20091009
  Serious: Yes (Hospitalization)
  Sender: FDA-Public Use
  Company Number: 2009005552

PATIENT
  Age: 67 Year
  Sex: Male

DRUGS (2)
  1. FENTORA [Suspect]
     Indication: CANCER PAIN
     Dosage: 2400 MCG (600 MCG, 4 IN 1 D), BU
     Route: 002
     Dates: start: 20090408
  2. FENTANYL (FENTANYL) (POULTICE OR PATCH) [Concomitant]

REACTIONS (3)
  - DYSPNOEA [None]
  - LUNG DISORDER [None]
  - LUNG INFECTION [None]
